FAERS Safety Report 6197505-2 (Version None)
Quarter: 2009Q2

REPORT INFORMATION
  Report Type: 
  Country: None (occurrence: None)
  Receive Date: 20090518
  Receipt Date: 20090505
  Transmission Date: 20091009
  Serious: Yes (Hospitalization)
  Sender: FDA-Public Use
  Company Number: 234827K09USA

PATIENT
  Age: 26 Year
  Sex: Female

DRUGS (9)
  1. REBIF [Suspect]
     Indication: MULTIPLE SCLEROSIS
     Dosage: 44 MCG, 3 IN 1 WEEKS, SUBCUTANEOUS
     Route: 058
     Dates: start: 20081001
  2. CELEXA [Concomitant]
  3. NEURONTIN [Concomitant]
  4. REMERON [Concomitant]
  5. DIAZEPAM [Concomitant]
  6. PHENERGAN (PROMETHAZINE) [Concomitant]
  7. LORTAB (VICODIN) [Concomitant]
  8. AMITRIPTYLINE HCL [Concomitant]
  9. STEROIDS (CORTICOSTEROIDS) [Concomitant]

REACTIONS (7)
  - ABDOMINAL DISTENSION [None]
  - ABDOMINAL PAIN [None]
  - FEELING HOT [None]
  - FLUSHING [None]
  - GASTROINTESTINAL DISORDER [None]
  - HYPERHIDROSIS [None]
  - OVARIAN CYST [None]
